FAERS Safety Report 5207969-6 (Version None)
Quarter: 2007Q1

REPORT INFORMATION
  Report Type: 
  Country: None (occurrence: None)
  Receive Date: 20070110
  Receipt Date: 20061228
  Transmission Date: 20070707
  Serious: Yes (Hospitalization, Other)
  Sender: FDA-Public Use
  Company Number: HQWYE104102JAN07

PATIENT
  Age: 76 Year
  Sex: Female

DRUGS (9)
  1. CORDARONE [Suspect]
     Dosage: 200 MG 3X PER 1 DAY ORAL
     Route: 048
     Dates: start: 20060824, end: 20060801
  2. ALDACTONE [Suspect]
     Dosage: 25 MG 1X PER 1 DAY ORAL
     Route: 048
     Dates: start: 20060831, end: 20060913
  3. POTASSIUM CHLORIDE [Suspect]
     Dosage: 2400 MG 1X PER 1 DAY ORAL
     Route: 048
     Dates: start: 20060701, end: 20060812
  4. POTASSIUM CHLORIDE [Suspect]
     Dosage: 1200 MG 1X PER 1 DAY ORAL
     Route: 048
     Dates: start: 20060813, end: 20060916
  5. LASIX [Suspect]
     Dosage: 120 MG 1X PER 1 DAY ORAL
     Route: 048
     Dates: start: 20060720, end: 20060812
  6. LASIX [Suspect]
     Dosage: 80 MG 1X PER 1 DAY ORAL
     Route: 048
     Dates: start: 20060813, end: 20060916
  7. PREVISCAN (FLUINDIONE, ) [Suspect]
     Dosage: 20 MG DOSE FORM; DAILY FREQUENCY NOT SPCIFIED ORAL
     Route: 048
     Dates: start: 20060720
  8. RAMIPRIL [Suspect]
     Dosage: 5 MG 1X PER 1 DAY ORAL
     Route: 048
     Dates: start: 20060727, end: 20060907
  9. RAMIPRIL [Suspect]
     Dosage: 10 MG 1X PER 1 DAY ORAL
     Route: 048
     Dates: start: 20060908, end: 20060913

REACTIONS (7)
  - CREATININE RENAL CLEARANCE DECREASED [None]
  - GLOSSITIS [None]
  - HYPERKALAEMIA [None]
  - LIP ULCERATION [None]
  - PHOTOSENSITIVITY REACTION [None]
  - RASH PUSTULAR [None]
  - SKIN EXFOLIATION [None]
